FAERS Safety Report 6413623-5 (Version None)
Quarter: 2009Q4

REPORT INFORMATION
  Report Type: 
  Country: None (occurrence: None)
  Receive Date: 20091026
  Receipt Date: 20091020
  Transmission Date: 20100525
  Serious: No
  Sender: FDA-Public Use
  Company Number: US-B.I. PHARMACEUTICALS,INC./RIDGEFIELD-2009-BP-12300BP

PATIENT
  Sex: Male

DRUGS (10)
  1. CATAPRES-TTS-1 [Suspect]
     Indication: BLOOD PRESSURE MANAGEMENT
     Dosage: 0.3 MG
     Route: 061
     Dates: start: 20090401, end: 20091019
  2. PRIMIDONE [Concomitant]
     Indication: ESSENTIAL TREMOR
  3. LASIX [Concomitant]
     Indication: HYPERTENSION
  4. PREVACID [Concomitant]
     Indication: GASTROOESOPHAGEAL REFLUX DISEASE
  5. KLOR-CON [Concomitant]
  6. CARDIA XT [Concomitant]
     Indication: HYPERTENSION
  7. ATENOLOL [Concomitant]
     Indication: HYPERTENSION
  8. ENALAPRIL MALEATE [Concomitant]
     Indication: HYPERTENSION
  9. IMIPRAMINE [Concomitant]
     Indication: BLADDER DISORDER
  10. ALLERGY [Concomitant]
     Indication: HYPERSENSITIVITY

REACTIONS (5)
  - APPLICATION SITE ERYTHEMA [None]
  - APPLICATION SITE IRRITATION [None]
  - APPLICATION SITE PRURITUS [None]
  - APPLICATION SITE REACTION [None]
  - APPLICATION SITE SCAB [None]
